FAERS Safety Report 14205115 (Version 1)
Quarter: 2017Q4

REPORT INFORMATION
  Report Type: Spontaneous
  Country: None (occurrence: US)
  Receive Date: 20171120
  Receipt Date: 20171120
  Transmission Date: 20180321
  Serious: No
  Sender: FDA-Public Use
  Company Number: US-MEDAC PHARMA, INC.-2034661

PATIENT
  Sex: Male

DRUGS (1)
  1. RASUVO [Suspect]
     Active Substance: METHOTREXATE SODIUM

REACTIONS (1)
  - Drug ineffective [Unknown]
